FAERS Safety Report 21694857 (Version 2)
Quarter: 2025Q3

REPORT INFORMATION
  Report Type: Spontaneous
  Country: EU (occurrence: EU)
  Receive Date: 20221207
  Receipt Date: 20250819
  Transmission Date: 20251020
  Serious: Yes (Congenital Anomaly, Other)
  Sender: AUROBINDO
  Company Number: EU-TEVA-2022-DE-2827357

PATIENT
  Weight: 3.2 kg

DRUGS (1)
  1. DICLOFENAC [Suspect]
     Active Substance: DICLOFENAC
     Indication: Thrombophlebitis
     Route: 051

REACTIONS (2)
  - Newborn persistent pulmonary hypertension [Recovered/Resolved]
  - Foetal exposure during pregnancy [Unknown]
